FAERS Safety Report 4414329-4 (Version None)
Quarter: 2004Q3

REPORT INFORMATION
  Report Type: 
  Country: None (occurrence: None)
  Receive Date: 20040701
  Receipt Date: 20040120
  Transmission Date: 20050211
  Serious: Yes (Hospitalization)
  Sender: FDA-Public Use
  Company Number: VISP-PR-0401S-0023(0)

PATIENT
  Age: 52 Year
  Sex: Female

DRUGS (17)
  1. VISIPAQUE [Suspect]
     Indication: PAIN
     Dosage: 100 ML, SINGLE DOSE, I.V. (SEE IMAGE)
     Route: 042
     Dates: start: 20040116, end: 20040116
  2. AZITHROMYCIN (Z-PACK) [Concomitant]
  3. MEDROL [Concomitant]
  4. OXYCOCET (PERCOCET) [Concomitant]
  5. SALBUTAMOL (ABUTEROL) [Concomitant]
  6. MOXIFLOXACIN HYDROCHLORIDE (AVELOX) [Concomitant]
  7. TIZANIDINE HYDROCHLORIDE (ZANAFLEX) [Concomitant]
  8. OXYCODONE HYDROCHLORIDE (ROXICODONE) [Concomitant]
  9. ZOLOFT [Concomitant]
  10. SYNTHROID [Concomitant]
  11. ZOCOR [Concomitant]
  12. HYDROCHLOROTHIAZIDE [Concomitant]
  13. MEGESTROL ACETATE (MEGACE) [Concomitant]
  14. ALBUTEROL (PROVENTIL) [Concomitant]
  15. PRILOSEC [Concomitant]
  16. SERETIDE MITE (ADVAIR DISKUS) [Concomitant]
  17. SINGULAIR [Concomitant]

REACTIONS (1)
  - ASTHMA [None]
